FAERS Safety Report 10143302 (Version 1)
Quarter: 2014Q2

REPORT INFORMATION
  Report Type: Spontaneous
  Country: US (occurrence: None)
  Receive Date: 20140429
  Receipt Date: 20140429
  Transmission Date: 20141212
  Serious: No
  Sender: FDA-Public Use
  Company Number: None

PATIENT
  Age: 38 Year
  Sex: Female
  Weight: 104.33 kg

DRUGS (1)
  1. INTUNIV [Suspect]
     Indication: ATTENTION DEFICIT/HYPERACTIVITY DISORDER
     Route: 048
     Dates: start: 20140307

REACTIONS (7)
  - Dizziness [None]
  - Vision blurred [None]
  - Dyspnoea [None]
  - Anxiety [None]
  - Hypoaesthesia [None]
  - Heart rate abnormal [None]
  - Angina pectoris [None]
